FAERS Safety Report 9123090 (Version 1)
Quarter: 2013Q1

REPORT INFORMATION
  Report Type: Spontaneous
  Country: US (occurrence: None)
  Receive Date: 20130225
  Receipt Date: 20130225
  Transmission Date: 20140127
  Serious: Yes (Other)
  Sender: FDA-Public Use
  Company Number: None

PATIENT
  Age: 68 Year
  Sex: Female
  Weight: 86.18 kg

DRUGS (1)
  1. HYDROCODONE APAP 10/325 QUA [Suspect]
     Indication: ARTHRITIS
     Dosage: 2 TABS  Q 6 HOURS  PO
     Route: 048
     Dates: start: 20111115, end: 20111201

REACTIONS (3)
  - Abdominal pain upper [None]
  - Product formulation issue [None]
  - Product quality issue [None]
